FAERS Safety Report 7966031-X (Version None)
Quarter: 2011Q4

REPORT INFORMATION
  Report Type: 
  Country: None (occurrence: None)
  Receive Date: 20111208
  Receipt Date: 20111201
  Transmission Date: 20120403
  Serious: No
  Sender: FDA-Public Use
  Company Number: US-PFIZER INC-2011296248

PATIENT
  Sex: Female

DRUGS (2)
  1. FUROSEMIDE [Concomitant]
  2. TOVIAZ [Suspect]
     Dosage: UNK

REACTIONS (2)
  - URINARY INCONTINENCE [None]
  - NOCTURIA [None]
